FAERS Safety Report 24771155 (Version 2)
Quarter: 2025Q1

REPORT INFORMATION
  Report Type: Spontaneous
  Country: JP (occurrence: JP)
  Receive Date: 20241224
  Receipt Date: 20250130
  Transmission Date: 20250409
  Serious: Yes (Other)
  Sender: BOEHRINGER INGELHEIM
  Company Number: JP-NBI-2024-BI-069351

PATIENT
  Age: 74 Year
  Sex: Male
  Weight: 67.0 kg

DRUGS (6)
  1. JARDIANCE [Suspect]
     Active Substance: EMPAGLIFLOZIN
     Indication: Chronic kidney disease
  2. JARDIANCE [Suspect]
     Active Substance: EMPAGLIFLOZIN
     Indication: Cardiac failure chronic
  3. SACUBITRIL VALSARTAN SODIUM HYDRATE [Concomitant]
     Indication: Product used for unknown indication
  4. NIFEDIPINE [Concomitant]
     Active Substance: NIFEDIPINE
     Indication: Product used for unknown indication
  5. VONOPRAZAN FUMARATE [Concomitant]
     Active Substance: VONOPRAZAN FUMARATE
     Indication: Product used for unknown indication
  6. SUVOREXANT [Concomitant]
     Active Substance: SUVOREXANT
     Indication: Product used for unknown indication

REACTIONS (3)
  - Anti-neutrophil cytoplasmic antibody positive vasculitis [Unknown]
  - Renal impairment [Unknown]
  - Glomerulonephritis chronic [Unknown]
